FAERS Safety Report 8937181 (Version 1)
Quarter: 2012Q4

REPORT INFORMATION
  Report Type: Spontaneous
  Country: US (occurrence: None)
  Receive Date: 20121128
  Receipt Date: 20121128
  Transmission Date: 20130627
  Serious: Yes (Hospitalization)
  Sender: FDA-Public Use
  Company Number: None

PATIENT
  Age: 76 Year
  Sex: Female

DRUGS (11)
  1. COUMADIN [Suspect]
     Indication: AFIB
     Dosage: chronic
     Route: 048
  2. ASA [Suspect]
     Indication: CORONARY ARTERY DISEASE
     Dosage: chronic
     Route: 048
  3. DILTIAZEM [Concomitant]
  4. FENOFIBRATE [Concomitant]
  5. LASIX [Concomitant]
  6. METOPROLOL [Concomitant]
  7. KCL [Concomitant]
  8. PRAVASTATIN [Concomitant]
  9. XANAX [Concomitant]
  10. GLIPIZIDE [Concomitant]
  11. AMBIEN [Concomitant]

REACTIONS (9)
  - Haemothorax [None]
  - Mental status changes [None]
  - Hypercapnia [None]
  - Coagulopathy [None]
  - International normalised ratio increased [None]
  - Haemorrhagic anaemia [None]
  - Respiratory disorder [None]
  - Inflammation [None]
  - Adenocarcinoma [None]
